FAERS Safety Report 7650355-X (Version None)
Quarter: 2011Q3

REPORT INFORMATION
  Report Type: 
  Country: None (occurrence: None)
  Receive Date: 20110802
  Receipt Date: 20110720
  Transmission Date: 20111222
  Serious: Yes (Other)
  Sender: FDA-Public Use
  Company Number: US-ASTRAZENECA-2009UW13190

PATIENT
  Age: 47 Year
  Sex: Female
  Weight: 99.8 kg

DRUGS (14)
  1. RISPERDAL [Concomitant]
     Dates: start: 20050101
  2. TEMAZEPAM [Concomitant]
     Dates: start: 20051202
  3. SEROQUEL [Suspect]
     Indication: DEPRESSION
     Dosage: 100-200 MG
     Route: 048
     Dates: start: 20030101
  4. HALDOL [Concomitant]
     Dates: start: 19790101
  5. RISPERDAL [Concomitant]
     Dates: end: 20031212
  6. MIRTAZAPINE [Concomitant]
     Dosage: 30-45 MG
     Dates: start: 20050203, end: 20070503
  7. SEROQUEL [Suspect]
     Dosage: 100 MG AM AND 200 MG HS
     Route: 048
     Dates: start: 20031212
  8. SEROQUEL [Suspect]
     Indication: STRESS
     Dosage: 100-200 MG
     Route: 048
     Dates: start: 20030101
  9. ABILIFY [Concomitant]
     Dates: start: 20050101
  10. AMITRIPTYLINE HCL [Concomitant]
     Dates: start: 20051031
  11. SEROQUEL [Suspect]
     Indication: ANXIETY
     Dosage: 100-200 MG
     Route: 048
     Dates: start: 20030101
  12. SEROQUEL [Suspect]
     Dosage: 100 MG AM AND 200 MG HS
     Route: 048
     Dates: start: 20031212
  13. SEROQUEL [Suspect]
     Dosage: 100 MG AM AND 200 MG HS
     Route: 048
     Dates: start: 20031212
  14. AMITRIPTYLINE HCL [Concomitant]
     Dates: start: 20050202, end: 20070609

REACTIONS (9)
  - PLANTAR FASCIITIS [None]
  - DYSPEPSIA [None]
  - OBESITY [None]
  - HYPERLIPIDAEMIA [None]
  - DIABETES MELLITUS INADEQUATE CONTROL [None]
  - BLOOD CHOLESTEROL INCREASED [None]
  - WEIGHT INCREASED [None]
  - NEUROPATHY PERIPHERAL [None]
  - TYPE 2 DIABETES MELLITUS [None]
